FAERS Safety Report 22282863 (Version 1)
Quarter: 2023Q2

REPORT INFORMATION
  Report Type: Other
  Country: PH (occurrence: None)
  Receive Date: 20230504
  Receipt Date: 20230504
  Transmission Date: 20230721
  Serious: Yes (Death, Hospitalization)
  Sender: FDA-Public Use
  Company Number: PH-ROCHE-3340731

PATIENT
  Age: 26 Year
  Sex: Male
  Weight: 49 kg

DRUGS (1)
  1. MABTHERA [Suspect]
     Active Substance: RITUXIMAB
     Indication: Non-Hodgkin^s lymphoma
     Dosage: NOT PROVIDED ;ONGOING: YES
     Route: 058
     Dates: start: 2021

REACTIONS (3)
  - Cardiac arrest [Fatal]
  - Staphylococcal infection [Recovered/Resolved]
  - Furuncle [Not Recovered/Not Resolved]

NARRATIVE: CASE EVENT DATE: 20230430
